FAERS Safety Report 18597630 (Version 1)
Quarter: 2020Q4

REPORT INFORMATION
  Report Type: Not Available
  Country: US (occurrence: US)
  Receive Date: 20201209
  Receipt Date: 20201209
  Transmission Date: 20210114
  Serious: Yes (Other)
  Sender: FDA-Public Use
  Company Number: US-NEUROCRINE BIOSCIENCES INC.-2020NBI04420

PATIENT
  Age: 67 Year
  Sex: Female

DRUGS (2)
  1. INGREZZA [Suspect]
     Active Substance: VALBENAZINE
     Route: 048
     Dates: start: 20200812
  2. INGREZZA [Suspect]
     Active Substance: VALBENAZINE
     Indication: TARDIVE DYSKINESIA
     Route: 048
     Dates: start: 20200805, end: 20200811

REACTIONS (9)
  - Chest pain [Unknown]
  - Oxygen saturation decreased [Unknown]
  - Feeling abnormal [Unknown]
  - Neoplasm [Unknown]
  - Blood pressure fluctuation [Unknown]
  - Headache [Unknown]
  - Dyskinesia [Unknown]
  - Heart rate decreased [Unknown]
  - Fall [Recovered/Resolved]

NARRATIVE: CASE EVENT DATE: 2020
